FAERS Safety Report 8242865-1 (Version None)
Quarter: 2012Q1

REPORT INFORMATION
  Report Type: 
  Country: None (occurrence: None)
  Receive Date: 20120329
  Receipt Date: 20120326
  Transmission Date: 20120608
  Serious: Yes (Hospitalization, Other)
  Sender: FDA-Public Use
  Company Number: FR-PFIZER INC-2012076615

PATIENT
  Age: 36 Year
  Sex: Female

DRUGS (4)
  1. DEPAKOTE [Suspect]
     Dosage: UNK
     Route: 048
  2. XANAX [Suspect]
     Dosage: 0.5 MG, UNK
     Route: 048
  3. HALDOL [Concomitant]
  4. LEPTICUR [Concomitant]

REACTIONS (4)
  - TOXICITY TO VARIOUS AGENTS [None]
  - INFLAMMATION [None]
  - COMA [None]
  - BLOOD UREA INCREASED [None]
